FAERS Safety Report 10142790 (Version 1)
Quarter: 2014Q2

REPORT INFORMATION
  Report Type: Spontaneous
  Country: US (occurrence: None)
  Receive Date: 20140429
  Receipt Date: 20140429
  Transmission Date: 20141212
  Serious: Yes (Other)
  Sender: FDA-Public Use
  Company Number: None

PATIENT
  Age: 66 Year
  Sex: Female
  Weight: 54.43 kg

DRUGS (9)
  1. CHLORHEXIDINE GLUCONATE [Suspect]
     Indication: DENTAL CARE
     Route: 048
     Dates: start: 20140305, end: 20140314
  2. ADVAIR [Concomitant]
  3. OMEPRAZOLE [Concomitant]
  4. TRAZADONE [Concomitant]
  5. ATORVASTATIN [Concomitant]
  6. ASPIRIN [Concomitant]
  7. VITAMIN D [Concomitant]
  8. MULTIVITAMIN [Concomitant]
  9. LORATIDINE [Concomitant]

REACTIONS (4)
  - Dysgeusia [None]
  - Dysgeusia [None]
  - Appetite disorder [None]
  - Weight decreased [None]
